FAERS Safety Report 6715690-8 (Version None)
Quarter: 2010Q2

REPORT INFORMATION
  Report Type: 
  Country: None (occurrence: None)
  Receive Date: 20100507
  Receipt Date: 20100426
  Transmission Date: 20101027
  Serious: Yes (Other)
  Sender: FDA-Public Use
  Company Number: US-ROCHE-701352

PATIENT
  Sex: Female
  Weight: 61.2 kg

DRUGS (2)
  1. BONIVA [Suspect]
     Indication: DRUG USE FOR UNKNOWN INDICATION
     Route: 048
  2. LEVOTHYROXINE SODIUM [Concomitant]
     Dosage: DRUG REPORTED AS LEVOTHYROXINE

REACTIONS (1)
  - FEMUR FRACTURE [None]
